FAERS Safety Report 7773643-5 (Version None)
Quarter: 2011Q3

REPORT INFORMATION
  Report Type: 
  Country: None (occurrence: None)
  Receive Date: 20110923
  Receipt Date: 20110913
  Transmission Date: 20111222
  Serious: Yes (Hospitalization)
  Sender: FDA-Public Use
  Company Number: US-BIOGENIDEC-2011BI031303

PATIENT
  Age: 34 Year
  Sex: Female

DRUGS (7)
  1. ALLEGRA [Concomitant]
     Indication: URTICARIA
  2. PROTONIX [Concomitant]
     Indication: GASTROOESOPHAGEAL REFLUX DISEASE
  3. DOXEPIN [Concomitant]
     Indication: URTICARIA
  4. LEVOTHYROXINE SODIUM [Concomitant]
     Indication: HYPOTHYROIDISM
  5. TOPIRAMATE [Concomitant]
     Indication: MIGRAINE
  6. TYSABRI [Suspect]
     Indication: MULTIPLE SCLEROSIS
     Route: 042
     Dates: start: 20110401
  7. ATARAX [Concomitant]
     Indication: URTICARIA

REACTIONS (5)
  - WHITE BLOOD CELL COUNT INCREASED [None]
  - MULTIPLE SCLEROSIS RELAPSE [None]
  - CONTRAST MEDIA ALLERGY [None]
  - MUSCULAR WEAKNESS [None]
  - BLOOD GLUCOSE INCREASED [None]
